FAERS Safety Report 8384175-8 (Version None)
Quarter: 2012Q2

REPORT INFORMATION
  Report Type: 
  Country: None (occurrence: None)
  Receive Date: 20120524
  Receipt Date: 20120522
  Transmission Date: 20120825
  Serious: Yes (Disabling, Other)
  Sender: FDA-Public Use
  Company Number: US-PFIZER INC-2012124215

PATIENT
  Sex: Female
  Weight: 70.3 kg

DRUGS (9)
  1. PROCARDIA XL [Concomitant]
     Indication: SKIN ULCER
     Dosage: 30 MG, 2X/DAY
     Route: 048
  2. METHOTREXATE [Concomitant]
     Dosage: UNK
  3. LYRICA [Suspect]
     Indication: NEUROPATHY PERIPHERAL
  4. LYRICA [Suspect]
     Indication: NEURALGIA
     Dosage: 225 MG, 2X/DAY
     Route: 048
  5. PROCARDIA XL [Concomitant]
     Indication: GANGRENE
  6. CELEBREX [Suspect]
     Indication: INFLAMMATION
     Dosage: 200 MG, 2X/DAY
     Route: 048
  7. LYRICA [Suspect]
     Indication: MORTON'S NEUROMA
  8. PROCARDIA XL [Concomitant]
  9. VIAGRA [Suspect]
     Indication: PULMONARY HYPERTENSION
     Dosage: 25 MG, 2X/DAY
     Route: 048
     Dates: start: 20100101

REACTIONS (1)
  - SCLERODERMA [None]
